FAERS Safety Report 11829948 (Version 2)
Quarter: 2016Q1

REPORT INFORMATION
  Report Type: Spontaneous
  Country: US (occurrence: US)
  Receive Date: 20151213
  Receipt Date: 20160107
  Transmission Date: 20160525
  Serious: No
  Sender: FDA-Public Use
  Company Number: US-ASTRAZENECA-2015SF22492

PATIENT
  Sex: Female
  Weight: 59 kg

DRUGS (1)
  1. BYDUREON [Suspect]
     Active Substance: EXENATIDE
     Indication: TYPE 2 DIABETES MELLITUS
     Dosage: 2 MG 4 COUNT ONCE A WEEK
     Route: 058
     Dates: start: 201506

REACTIONS (6)
  - Injection site nodule [Unknown]
  - Injection site discolouration [Unknown]
  - Injection site swelling [Unknown]
  - Device defective [Unknown]
  - Injection site pain [Recovered/Resolved]
  - Underdose [Unknown]
